FAERS Safety Report 15602794 (Version 1)
Quarter: 2018Q4

REPORT INFORMATION
  Report Type: Spontaneous
  Country: PK (occurrence: PK)
  Receive Date: 20181109
  Receipt Date: 20181109
  Transmission Date: 20190205
  Serious: Yes (Other)
  Sender: FDA-Public Use
  Company Number: PK-SA-2018SA307060

PATIENT
  Sex: Male

DRUGS (1)
  1. LANTUS [Suspect]
     Active Substance: INSULIN GLARGINE
     Indication: HYPERGLYCAEMIA
     Dosage: 20 U
     Route: 058
     Dates: start: 201808, end: 20181105

REACTIONS (4)
  - Speech disorder [Unknown]
  - Hemiplegia [Unknown]
  - Blood glucose increased [Unknown]
  - Inappropriate schedule of product administration [Unknown]

NARRATIVE: CASE EVENT DATE: 20181031
